FAERS Safety Report 20342969 (Version 2)
Quarter: 2022Q1

REPORT INFORMATION
  Report Type: Spontaneous
  Country: JP (occurrence: JP)
  Receive Date: 20220117
  Receipt Date: 20220225
  Transmission Date: 20220424
  Serious: Yes (Death, Hospitalization, Other)
  Sender: FDA-Public Use
  Company Number: JP-BAYER-2021A219074

PATIENT
  Age: 85 Year
  Sex: Female
  Weight: 46.5 kg

DRUGS (6)
  1. XARELTO [Suspect]
     Active Substance: RIVAROXABAN
     Indication: Atrial fibrillation
     Dosage: DAILY DOSE 10 MG
     Route: 048
     Dates: start: 20150222, end: 20210812
  2. AMLODIPINE [Concomitant]
     Active Substance: AMLODIPINE BESYLATE
     Dosage: DAILY DOSE 5MG
  3. BISOPROLOL [Concomitant]
     Active Substance: BISOPROLOL
     Dosage: DAILY DOSE 0.25MG
  4. OLMESARTAN MEDOXOMIL [Concomitant]
     Active Substance: OLMESARTAN MEDOXOMIL
     Dosage: DAILY DOSE 20MG
  5. TRICHLORMETHIAZIDE [Concomitant]
     Active Substance: TRICHLORMETHIAZIDE
     Dosage: DAILY DOSE 2MG
  6. LEVOTHYROXINE SODIUM [Concomitant]
     Active Substance: LEVOTHYROXINE SODIUM
     Dosage: DAILY DOSE 50UG

REACTIONS (2)
  - Anastomotic ulcer haemorrhage [Fatal]
  - Iron deficiency anaemia [Fatal]

NARRATIVE: CASE EVENT DATE: 20190422
